FAERS Safety Report 9602237 (Version 1)
Quarter: 2013Q4

REPORT INFORMATION
  Report Type: Spontaneous
  Country: FR (occurrence: None)
  Receive Date: 20131003
  Receipt Date: 20131003
  Transmission Date: 20140711
  Serious: Yes (Hospitalization)
  Sender: FDA-Public Use
  Company Number: SYM-2013-11143

PATIENT
  Age: 46 Year
  Sex: Male

DRUGS (13)
  1. 5-FU [Suspect]
     Indication: COLORECTAL CANCER METASTATIC
     Dosage: 756 MG, EVERY OTHER WEEK, INTRAVENOUS BOLUS
     Route: 040
     Dates: start: 20130130, end: 20130130
  2. AFLIBERCEPT [Suspect]
     Indication: COLORECTAL CANCER METASTATIC
     Dosage: 312 MG, EVERY OTHER WEEK, INTRAVENOUS DRIP
     Route: 041
     Dates: start: 20130130, end: 20130130
  3. IRINOTECAN [Suspect]
     Indication: COLORECTAL CANCER METASTATIC
     Dosage: 340 MG, EVERY OTHER WEEK, INTRAVENOUS DRIP
     Route: 041
     Dates: start: 20130130, end: 20130130
  4. LEUCOVORIN (FOLINIC ACID) (SOLUTION FOR INFUSION) (FOLINIC ACID) [Suspect]
     Indication: COLORECTAL CANCER METASTATIC
     Dosage: 756 MG, EVERY OTHER WEEK, INTRAVENOUS DRIP
     Route: 041
     Dates: start: 20130130, end: 20130130
  5. BISPHOSPHONATES (BISPHOSPHONATES) [Concomitant]
  6. ANALGESICS (ANALGESICS) [Concomitant]
  7. ANXIOLYTICS (ANXIOLYTICS) [Concomitant]
  8. HEPARIN (HEPARIN) (HEPARIN) [Concomitant]
  9. SMECTA (SMECTA) (GLUCOSE MONOHYDRATE, ALUMINIUM MAGNESIUM SILICATE, ALUMINIUM HYDROXIDE-MAGNESIUM CARBONATE GEL, GLYCYRRHIZA GLABRA) [Concomitant]
  10. LOPERAMIDE (LOPERAMIDE) (LOPERAMIDE) [Concomitant]
  11. ANTICHOLINERGICS (ANTICHOLINERGICS) [Concomitant]
  12. SEROTONIN ANTAGONISTS (SEROTONIKN ANTAGONISTS) [Concomitant]
  13. ANTITHROMBOTIC AGENTS (ANTITHROMBOTIC AGENTS) [Concomitant]

REACTIONS (1)
  - Urinary retention [None]
